FAERS Safety Report 25505465 (Version 1)
Quarter: 2025Q3

REPORT INFORMATION
  Report Type: Report from Study
  Country: US (occurrence: US)
  Receive Date: 20250702
  Receipt Date: 20250702
  Transmission Date: 20251021
  Serious: Yes (Other)
  Sender: JOHNSON AND JOHNSON
  Company Number: US-JNJFOC-20250633735

PATIENT
  Age: 5 Decade
  Sex: Male

DRUGS (3)
  1. SPRAVATO [Suspect]
     Active Substance: ESKETAMINE
     Indication: Depression
     Route: 045
     Dates: start: 20230719, end: 20231227
  2. SPRAVATO [Suspect]
     Active Substance: ESKETAMINE
     Dosage: ^56 MG, 1 TOTAL DOSE^, THE PATIENT HAD A DOSE OF 84 MG ON 27-JUN-2025
     Route: 045
     Dates: start: 20250625, end: 20250625
  3. SPRAVATO [Suspect]
     Active Substance: ESKETAMINE
     Route: 045
     Dates: start: 20230718, end: 20230718

REACTIONS (2)
  - Major depression [Unknown]
  - Post-traumatic stress disorder [Unknown]
